FAERS Safety Report 17371378 (Version 1)
Quarter: 2020Q1

REPORT INFORMATION
  Report Type: Spontaneous
  Country: US (occurrence: US)
  Receive Date: 20200205
  Receipt Date: 20200205
  Transmission Date: 20200409
  Serious: Yes (Other)
  Sender: FDA-Public Use
  Company Number: US-ELI_LILLY_AND_COMPANY-US202001012637

PATIENT
  Age: 70 Year
  Sex: Female

DRUGS (3)
  1. ACYCLOVIR SODIUM. [Concomitant]
     Active Substance: ACYCLOVIR SODIUM
     Indication: PRODUCT USED FOR UNKNOWN INDICATION
  2. GAMMA GLOBULIN [Concomitant]
     Active Substance: IMMUNE GLOBULIN NOS
     Indication: PRODUCT USED FOR UNKNOWN INDICATION
  3. HUMATROPE [Suspect]
     Active Substance: SOMATROPIN
     Indication: CHRONIC FATIGUE SYNDROME
     Dosage: UNK, UNKNOWN
     Route: 065

REACTIONS (2)
  - Mobility decreased [Unknown]
  - Off label use [Unknown]
